FAERS Safety Report 21168622 (Version 1)
Quarter: 2022Q3

REPORT INFORMATION
  Report Type: Spontaneous
  Country: US (occurrence: US)
  Receive Date: 20220803
  Receipt Date: 20220803
  Transmission Date: 20221026
  Serious: No
  Sender: FDA-Public Use
  Company Number: US-GALDERMA-US2022008955

PATIENT

DRUGS (3)
  1. DIFFERIN [Suspect]
     Active Substance: ADAPALENE
     Indication: Acne cystic
     Dosage: 1 DOSAGE FORM
     Route: 061
  2. EPIDUO FORTE [Suspect]
     Active Substance: ADAPALENE\BENZOYL PEROXIDE
     Indication: Acne cystic
     Dosage: 1 DOSAGE FORM
     Route: 061
  3. TRETINOIN [Concomitant]
     Active Substance: TRETINOIN
     Indication: Acne cystic

REACTIONS (3)
  - Acne cystic [Unknown]
  - Condition aggravated [Unknown]
  - Product use in unapproved indication [Recovered/Resolved]
